FAERS Safety Report 13085312 (Version 1)
Quarter: 2017Q1

REPORT INFORMATION
  Report Type: Spontaneous
  Country: GB (occurrence: GB)
  Receive Date: 20170104
  Receipt Date: 20170104
  Transmission Date: 20170428
  Serious: Yes (Hospitalization)
  Sender: FDA-Public Use
  Company Number: GB-PFIZER INC-2017001742

PATIENT
  Age: 90 Year
  Sex: Female

DRUGS (9)
  1. WARFARIN [Concomitant]
     Active Substance: WARFARIN
  2. ROPINIROLE. [Concomitant]
     Active Substance: ROPINIROLE
  3. PARACETAMOL [Concomitant]
     Active Substance: ACETAMINOPHEN
  4. ISOSORBIDE MONONITRATE. [Concomitant]
     Active Substance: ISOSORBIDE MONONITRATE
  5. EPLERENONE. [Suspect]
     Active Substance: EPLERENONE
     Dosage: 50 MG, 1X/DAY
     Dates: end: 20161216
  6. CODEINE [Concomitant]
     Active Substance: CODEINE
  7. SIMVASTATIN. [Concomitant]
     Active Substance: SIMVASTATIN
  8. CANDESARTAN CILEXETIL. [Suspect]
     Active Substance: CANDESARTAN CILEXETIL
     Dosage: 8 MG, 1X/DAY
     Dates: end: 20161216
  9. BUMETANIDE. [Concomitant]
     Active Substance: BUMETANIDE
     Dosage: 5 MG, DAILY
     Dates: end: 20161216

REACTIONS (3)
  - Hyperkalaemia [Recovering/Resolving]
  - Malaise [Unknown]
  - C-reactive protein increased [Unknown]
